FAERS Safety Report 12354521 (Version 5)
Quarter: 2016Q3

REPORT INFORMATION
  Report Type: Report from Study
  Country: JP (occurrence: JP)
  Receive Date: 20160511
  Receipt Date: 20160711
  Transmission Date: 20161109
  Serious: Yes (Other)
  Sender: FDA-Public Use
  Company Number: JP-GLAXOSMITHKLINE-JP2016JPN044371

PATIENT
  Age: 84 Year
  Sex: Male
  Weight: 47 kg

DRUGS (15)
  1. ATOVAQUONE. [Suspect]
     Active Substance: ATOVAQUONE
     Indication: PNEUMOCYSTIS JIROVECII PNEUMONIA
     Dosage: 750 MG, BID
     Route: 048
     Dates: start: 20130213, end: 20130226
  2. MUCODYNE TABLETS [Concomitant]
     Indication: BRONCHITIS
     Dosage: 500 MG, TID
     Route: 048
     Dates: start: 20150212, end: 20150225
  3. CRAVIT [Concomitant]
     Active Substance: LEVOFLOXACIN
     Indication: UPPER RESPIRATORY TRACT INFLAMMATION
     Dosage: 500 MG, QD
     Route: 048
     Dates: start: 20140417, end: 20140420
  4. ADALAT [Concomitant]
     Active Substance: NIFEDIPINE
     Indication: BLOOD PRESSURE INCREASED
     Dosage: 10 MG, TID /PRN
     Route: 048
     Dates: start: 20130215, end: 20130225
  5. BIOFERMIN-R TABLETS (JAPAN) [Concomitant]
     Dosage: 1 DF, TID
     Route: 048
     Dates: start: 20130215, end: 20141210
  6. OLMETEC [Concomitant]
     Active Substance: OLMESARTAN MEDOXOMIL
     Indication: HYPERTENSION
     Dosage: 10 MG, QD
     Route: 048
     Dates: start: 20130223
  7. ALMETA OINTMENT [Concomitant]
     Indication: DERMATITIS
     Dosage: AS MUCH AS SUFFICES, BID
     Dates: start: 20130516
  8. LOXONIN [Concomitant]
     Active Substance: LOXOPROFEN SODIUM
     Dosage: 60 MG, TID
     Route: 048
     Dates: start: 20140417, end: 20140423
  9. PROPETO [Concomitant]
     Indication: ANGULAR CHEILITIS
     Dosage: AS MUCH AS SUFFICES
     Dates: start: 20130213
  10. FLORID [Concomitant]
     Active Substance: MICONAZOLE
     Indication: ANGULAR CHEILITIS
     Dosage: AS MUCH AS SUFFICES, QID
     Route: 048
     Dates: start: 20130213, end: 20130226
  11. ATOVAQUONE. [Suspect]
     Active Substance: ATOVAQUONE
     Indication: ANTIFUNGAL PROPHYLAXIS
     Dosage: 1500 MG, QD
     Route: 048
     Dates: start: 20130227, end: 20130614
  12. FUNGIZONE [Concomitant]
     Active Substance: AMPHOTERICIN B
     Indication: ANGULAR CHEILITIS
     Dosage: 5 ML, PRN
     Route: 048
     Dates: start: 20130213
  13. MEDICON (DEXTROMETHORPHAN HYDROBROMIDE HYDRATE) [Concomitant]
     Indication: UPPER RESPIRATORY TRACT INFLAMMATION
     Dosage: 30 MG, TID
     Route: 048
     Dates: start: 20131023, end: 20131113
  14. SODIUM CHLORIDE. [Concomitant]
     Active Substance: SODIUM CHLORIDE
     Indication: MANTLE CELL LYMPHOMA
     Dosage: 1300 MG, TID
     Route: 048
     Dates: start: 20130213, end: 20130219
  15. NEXIUM CAPSULE [Concomitant]
     Indication: GASTRITIS
     Dosage: 20 MG, QD
     Route: 048
     Dates: start: 20130220, end: 20151210

REACTIONS (2)
  - Hypoaesthesia [Recovering/Resolving]
  - Febrile neutropenia [Recovered/Resolved]

NARRATIVE: CASE EVENT DATE: 20130215
